FAERS Safety Report 14199481 (Version 1)
Quarter: 2017Q4

REPORT INFORMATION
  Report Type: Spontaneous
  Country: US (occurrence: None)
  Receive Date: 20171116
  Receipt Date: 20171116
  Transmission Date: 20180321
  Serious: No
  Sender: FDA-Public Use
  Company Number: None

PATIENT
  Age: 43 Year
  Sex: Female

DRUGS (12)
  1. AMITRYPTYLIN [Concomitant]
  2. TRAMADOL. [Concomitant]
     Active Substance: TRAMADOL
  3. STELARA [Suspect]
     Active Substance: USTEKINUMAB
     Indication: PSORIATIC ARTHROPATHY
     Dosage: 90MG EVERY 12 WEEKS SUBCUTANEOUS
     Route: 058
     Dates: start: 20170510
  4. OTEZLA [Concomitant]
     Active Substance: APREMILAST
  5. PANTOPRAZOLE [Concomitant]
     Active Substance: PANTOPRAZOLE
  6. ZONISAMIDE. [Concomitant]
     Active Substance: ZONISAMIDE
  7. ASPIRIN. [Concomitant]
     Active Substance: ASPIRIN
  8. CELECOXIB. [Concomitant]
     Active Substance: CELECOXIB
  9. SERTRALINE [Concomitant]
     Active Substance: SERTRALINE HYDROCHLORIDE
  10. ENBREL [Suspect]
     Active Substance: ETANERCEPT
     Indication: PSORIATIC ARTHROPATHY
     Route: 058
     Dates: start: 20170113, end: 20170406
  11. ZYRTEC-D [Concomitant]
     Active Substance: CETIRIZINE HYDROCHLORIDE\PSEUDOEPHEDRINE HYDROCHLORIDE
  12. STELARA [Concomitant]
     Active Substance: USTEKINUMAB

REACTIONS (5)
  - Musculoskeletal stiffness [None]
  - Pulmonary mass [None]
  - Pain [None]
  - Peripheral swelling [None]
  - Respiratory tract infection [None]
